FAERS Safety Report 6678876-7 (Version None)
Quarter: 2010Q2

REPORT INFORMATION
  Report Type: 
  Country: None (occurrence: None)
  Receive Date: 20100413
  Receipt Date: 20100412
  Transmission Date: 20101027
  Serious: Yes (Hospitalization, Other)
  Sender: FDA-Public Use
  Company Number: EG-ROXANE LABORATORIES, INC.-2010-RO-00401RO

PATIENT
  Age: 22 Year
  Sex: Female

DRUGS (1)
  1. MORPHINE [Suspect]
     Indication: PANCREATITIS

REACTIONS (3)
  - BEZOAR [None]
  - DRUG INEFFECTIVE [None]
  - INTESTINAL GANGRENE [None]
